FAERS Safety Report 15515384 (Version 2)
Quarter: 2019Q1

REPORT INFORMATION
  Report Type: Spontaneous
  Country: JP (occurrence: JP)
  Receive Date: 20181017
  Receipt Date: 20190313
  Transmission Date: 20190417
  Serious: No
  Sender: FDA-Public Use
  Company Number: JP-ACCORD-072745

PATIENT
  Age: 9 Month
  Sex: Female
  Weight: 7.5 kg

DRUGS (7)
  1. TACROLIMUS. [Suspect]
     Active Substance: TACROLIMUS
     Indication: LIVER TRANSPLANT
     Dosage: 0.6 AND 0.4 MG BID
     Dates: start: 2016
  2. SULFAMETHOXAZOLE/TRIMETHOPRIM [Concomitant]
     Dosage: 250 MG BID, 2DAYS/WEEK
     Dates: start: 2016
  3. FAMOTIDINE. [Concomitant]
     Active Substance: FAMOTIDINE
     Dosage: 4 MG BID IN 2016
     Dates: start: 2016
  4. METHYLPREDNISOLONE. [Concomitant]
     Active Substance: METHYLPREDNISOLONE
     Indication: LIVER TRANSPLANT
     Dosage: 0.6, 1.5 AND 0.8 MG IN 2016
     Dates: start: 2016
  5. TOCOPHEROL [Concomitant]
     Active Substance: TOCOPHEROL
     Dates: start: 2016
  6. URSODEOXYCHOLATE SODIUM/URSODEOXYCHOLIC ACID [Concomitant]
     Dosage: 40 MG, 50 MG
     Dates: start: 2016
  7. VALGANCICLOVIR/VALGANCICLOVIR HYDROCHLORIDE [Concomitant]
     Dosage: 112.5 MG IN 2016
     Dates: start: 2016

REACTIONS (3)
  - Drug interaction [Unknown]
  - Drug level increased [Unknown]
  - Food interaction [Unknown]

NARRATIVE: CASE EVENT DATE: 201701
